FAERS Safety Report 9245313 (Version 1)
Quarter: 2013Q1

REPORT INFORMATION
  Report Type: Spontaneous
  Country: US (occurrence: None)
  Receive Date: 20121123
  Receipt Date: 20121123
  Transmission Date: 20140127
  Serious: No
  Sender: FDA-Public Use
  Company Number: 362317

PATIENT
  Age: 55 Year
  Sex: Male

DRUGS (2)
  1. VICTOZA [Suspect]
     Indication: PRODUCT USED FOR UNKNOWN INDICATION
     Route: 058
  2. ASPIRIN (ACETYLSALICYLIC ACID) [Suspect]

REACTIONS (3)
  - Libido decreased [None]
  - Ejaculation failure [None]
  - Erectile dysfunction [None]
